FAERS Safety Report 4852755-X (Version None)
Quarter: 2005Q4

REPORT INFORMATION
  Report Type: 
  Country: None (occurrence: None)
  Receive Date: 20051125
  Receipt Date: 20050719
  Transmission Date: 20060501
  Serious: Yes (Death)
  Sender: FDA-Public Use
  Company Number: HQWYE290820JUL05

PATIENT
  Age: 44 Year
  Sex: Male

DRUGS (4)
  1. ZOSYN [Suspect]
     Indication: CELLULITIS
     Dosage: 4.6 GRAMS, INTRAVENOUS
     Route: 042
     Dates: start: 20050603, end: 20050603
  2. LIPITOR [Concomitant]
  3. GLUCOTROL [Concomitant]
  4. TETANUS VACCINE ^PASTEUR^ (TETANUS VACCINE ADSORBED) [Concomitant]

REACTIONS (1)
  - ANAPHYLACTIC REACTION [None]
